FAERS Safety Report 6183852-7 (Version None)
Quarter: 2009Q2

REPORT INFORMATION
  Report Type: 
  Country: None (occurrence: None)
  Receive Date: 20090508
  Receipt Date: 20090428
  Transmission Date: 20091009
  Serious: Yes (Hospitalization)
  Sender: FDA-Public Use
  Company Number: US-AMGEN-QUU344944

PATIENT
  Sex: Female

DRUGS (2)
  1. ENBREL [Suspect]
     Indication: RHEUMATOID ARTHRITIS
     Route: 058
     Dates: start: 20050101
  2. METHOTREXATE [Concomitant]
     Route: 048
     Dates: start: 20090213

REACTIONS (4)
  - ASTHENIA [None]
  - CAROTID ARTERY OCCLUSION [None]
  - DYSPNOEA [None]
  - RHEUMATOID ARTHRITIS [None]
